FAERS Safety Report 4446509-6 (Version None)
Quarter: 2004Q3

REPORT INFORMATION
  Report Type: 
  Country: None (occurrence: None)
  Receive Date: 20040908
  Receipt Date: 20040826
  Transmission Date: 20050211
  Serious: Yes (Hospitalization)
  Sender: FDA-Public Use
  Company Number: FLUV00304002934

PATIENT
  Age: 24 Year
  Sex: Female
  Weight: 60 kg

DRUGS (21)
  1. LUVOX [Suspect]
     Indication: DEPRESSIVE SYMPTOM
     Dosage: SEE IMAGE
     Route: 048
     Dates: start: 20030703, end: 20040506
  2. LUVOX [Suspect]
     Indication: DEPRESSIVE SYMPTOM
     Dosage: SEE IMAGE
     Route: 048
     Dates: start: 20040507, end: 20040530
  3. LUVOX [Suspect]
     Indication: DEPRESSIVE SYMPTOM
     Dosage: SEE IMAGE
     Route: 048
     Dates: start: 20040531
  4. CLARITIN [Suspect]
     Indication: RHINITIS ALLERGIC
     Dosage: 10 MG DAILY PO
     Route: 048
     Dates: start: 20040203, end: 20040505
  5. CELESTAMINE TAB [Suspect]
     Indication: RHINITIS ALLERGIC
     Dosage: 1 DF DAILY PO
     Route: 048
     Dates: start: 20040210, end: 20040530
  6. ERYTHROCIN [Suspect]
     Indication: RHINITIS ALLERGIC
     Dosage: 400 MG DAILY PO
     Route: 048
     Dates: start: 20040210, end: 20040405
  7. RISPERDAL [Concomitant]
  8. ZYPREXA [Concomitant]
  9. EURODIN (ESTAZOLAM) [Concomitant]
  10. ROHYPNOL (FLUNITRAZEPAM) [Concomitant]
  11. VEGETAMIN (VITAMIN COMPLEX) [Concomitant]
  12. LORAZEPAM [Concomitant]
  13. DEPAS (ETIZOLAM) [Concomitant]
  14. HIRNAMIN (LEVOMEPROMAZINE) [Concomitant]
  15. PYRETHIA (PROMETHAZINE HYDROCHLORIDE) [Concomitant]
  16. AKINETON [Concomitant]
  17. PRIMPERAN TAB [Concomitant]
  18. PURSENNID (SENNA LEAF) [Concomitant]
  19. SELBEX (TEPRENONE) [Concomitant]
  20. VOLTAREN [Concomitant]
  21. KETOPROFEN [Concomitant]

REACTIONS (5)
  - BACK PAIN [None]
  - CHOLELITHIASIS [None]
  - DRUG INTERACTION [None]
  - HEPATIC FUNCTION ABNORMAL [None]
  - TRANSAMINASES INCREASED [None]
